FAERS Safety Report 4823900-7 (Version None)
Quarter: 2005Q4

REPORT INFORMATION
  Report Type: 
  Country: None (occurrence: None)
  Receive Date: 20051107
  Receipt Date: 20051027
  Transmission Date: 20060501
  Serious: Yes (Other)
  Sender: FDA-Public Use
  Company Number: 2005121198

PATIENT
  Sex: Female

DRUGS (8)
  1. NITROSTAT [Suspect]
     Indication: ANGINA PECTORIS
     Dosage: PRN
     Dates: start: 19900101
  2. LOMOTIL [Concomitant]
  3. BENTYL [Concomitant]
  4. PREMARIC (ESTROGENS CONJUGATED) [Concomitant]
  5. SYNTHROID [Concomitant]
  6. LORCET-HD [Concomitant]
  7. LASIX [Concomitant]
  8. NITRO-DUR [Concomitant]

REACTIONS (3)
  - ABDOMINAL ADHESIONS [None]
  - CROHN'S DISEASE [None]
  - INFLAMMATORY BOWEL DISEASE [None]
